FAERS Safety Report 4967605-0 (Version None)
Quarter: 2006Q2

REPORT INFORMATION
  Report Type: 
  Country: None (occurrence: None)
  Receive Date: 20060403
  Receipt Date: 20060324
  Transmission Date: 20061013
  Serious: Yes (Other)
  Sender: FDA-Public Use
  Company Number: 154079

PATIENT
  Age: 51 Year
  Sex: Male

DRUGS (2)
  1. AVONEX [Suspect]
     Indication: MULTIPLE SCLEROSIS
     Dosage: 30 UG;QW;IM
     Route: 030
     Dates: start: 19960622
  2. AVONEX [Suspect]
     Indication: MULTIPLE SCLEROSIS
     Dosage: BIW;IM
     Route: 030

REACTIONS (1)
  - MALIGNANT MELANOMA [None]
